FAERS Safety Report 19932376 (Version 1)
Quarter: 2021Q4

REPORT INFORMATION
  Report Type: Spontaneous
  Country: PL (occurrence: PL)
  Receive Date: 20211008
  Receipt Date: 20211008
  Transmission Date: 20220303
  Serious: Yes (Death, Hospitalization, Other)
  Sender: FDA-Public Use
  Company Number: PL-NOVARTISPH-NVSC2021PL229022

PATIENT
  Age: 70 Year
  Sex: Female

DRUGS (1)
  1. KISQALI [Suspect]
     Active Substance: RIBOCICLIB
     Indication: Product used for unknown indication
     Dosage: 600 MG, (START DATE: SEP)
     Route: 065

REACTIONS (8)
  - Death [Fatal]
  - Multiple organ dysfunction syndrome [Unknown]
  - Disease progression [Unknown]
  - Renal failure [Unknown]
  - Diabetes mellitus inadequate control [Unknown]
  - Thrombocytopenia [Unknown]
  - Leukopenia [Unknown]
  - Haemoglobin decreased [Unknown]
